FAERS Safety Report 10708246 (Version 1)
Quarter: 2015Q1

REPORT INFORMATION
  Report Type: Spontaneous
  Country: US (occurrence: US)
  Receive Date: 20150113
  Receipt Date: 20150113
  Transmission Date: 20150721
  Serious: Yes (Death)
  Sender: FDA-Public Use
  Company Number: US-BAYER-2015-004550

PATIENT
  Age: 53 Year
  Sex: Male

DRUGS (5)
  1. DIPHENHYDRAMINE HYDROCHLORIDE. [Suspect]
     Active Substance: DIPHENHYDRAMINE HYDROCHLORIDE
  2. DOXYLAMINE [Suspect]
     Active Substance: DOXYLAMINE
  3. CARBON MONOXIDE [Suspect]
     Active Substance: CARBON MONOXIDE
  4. CLONAZEPAM. [Suspect]
     Active Substance: CLONAZEPAM
  5. FLUOXETINE [Suspect]
     Active Substance: FLUOXETINE\FLUOXETINE HYDROCHLORIDE

REACTIONS (1)
  - Toxicity to various agents [Fatal]
